FAERS Safety Report 7658041 (Version 1)
Quarter: 2020Q3

REPORT INFORMATION
  Report Type: Report from Study
  Country: US (occurrence: US)
  Receive Date: 20101105
  Receipt Date: 20101105
  Transmission Date: 20201105
  Serious: Yes (Other)
  Sender: FDA-Public Use
  Company Number: US-ROCHE-736725

PATIENT
  Age: 57 Year
  Sex: Female

DRUGS (2)
  1. IBANDRONIC ACID. [Suspect]
     Active Substance: IBANDRONIC ACID
     Indication: OSTEOPOROSIS POSTMENOPAUSAL
     Dosage: FORM: PILL. CO?INDICATION: OSTEOPOROSIS
     Route: 048
     Dates: start: 2003, end: 20100620
  2. SIMVASTATIN. [Concomitant]
     Active Substance: SIMVASTATIN

REACTIONS (5)
  - Foot fracture [Unknown]
  - Osteopenia [Not Recovered/Not Resolved]
  - Pain in extremity [Unknown]
  - Osteoporosis [Not Recovered/Not Resolved]
  - Burning sensation [Not Recovered/Not Resolved]

NARRATIVE: CASE EVENT DATE: 20100801
